FAERS Safety Report 9044093 (Version 7)
Quarter: 2014Q2

REPORT INFORMATION
  Report Type: Report from Study
  Country: US (occurrence: US)
  Receive Date: 20130130
  Receipt Date: 20140421
  Transmission Date: 20141212
  Serious: Yes (Other)
  Sender: FDA-Public Use
  Company Number: PHEH2012US023844

PATIENT
  Age: 20 Year
  Sex: Female
  Weight: 61.22 kg

DRUGS (8)
  1. AFINITOR [Suspect]
     Indication: ANGIOMYOLIPOMA
     Dosage: 10 MG, DAILY
     Route: 048
     Dates: start: 20120929
  2. KEPPRA [Concomitant]
     Dosage: 3 DF, BID
  3. VIMPAT [Concomitant]
  4. PRIMIDON [Concomitant]
     Dosage: 4.5 DF, DAILY
  5. ONFI [Concomitant]
     Dosage: 10 MG, QD
  6. LAMICTAL [Concomitant]
  7. LAMOTRIGIN [Concomitant]
     Indication: CONVULSION
     Dosage: 10 DF, TID
  8. DIAZEPAM [Concomitant]
     Indication: CONVULSION
     Dosage: 10 MG, UNK

REACTIONS (7)
  - Fall [Unknown]
  - Ligament sprain [Unknown]
  - Convulsion [Recovered/Resolved]
  - Gastroenteritis viral [Recovered/Resolved]
  - Tinea infection [Not Recovered/Not Resolved]
  - Upper respiratory tract infection [Unknown]
  - Pyrexia [Unknown]
